FAERS Safety Report 21615157 (Version 2)
Quarter: 2024Q2

REPORT INFORMATION
  Report Type: Spontaneous
  Country: TW (occurrence: TW)
  Receive Date: 20221118
  Receipt Date: 20240528
  Transmission Date: 20240715
  Serious: Yes (Other)
  Sender: FDA-Public Use
  Company Number: TW-PFIZER INC-PV202200105346

PATIENT
  Age: 48 Year
  Sex: Male

DRUGS (2)
  1. VYNDAMAX [Suspect]
     Active Substance: TAFAMIDIS
     Dosage: UNK
     Route: 048
     Dates: start: 20211228
  2. VYNDAMAX [Suspect]
     Active Substance: TAFAMIDIS
     Dosage: 61MG/ 1 CA QD
     Route: 048
     Dates: start: 20220621

REACTIONS (4)
  - Myocardial ischaemia [Unknown]
  - Cardiac failure [Unknown]
  - Arrhythmia [Unknown]
  - Mitral valve disease [Unknown]

NARRATIVE: CASE EVENT DATE: 20220621
